FAERS Safety Report 19766974 (Version 1)
Quarter: 2021Q3

REPORT INFORMATION
  Report Type: Report from Study
  Country: MX (occurrence: MX)
  Receive Date: 20210830
  Receipt Date: 20210830
  Transmission Date: 20211014
  Serious: Yes (Other)
  Sender: FDA-Public Use
  Company Number: NVSC2021MX195101

PATIENT
  Sex: Female
  Weight: 81 kg

DRUGS (2)
  1. GALVUS MET [Suspect]
     Active Substance: METFORMIN HYDROCHLORIDE\VILDAGLIPTIN
     Indication: DIABETES MELLITUS
     Dosage: 1 DF (50 MG OF METFORMIN AND 850 MG OF VILDAGLIPTIN), TID AROUND 3 YEARS AGO
     Route: 048
  2. EXFORGE HCT [Suspect]
     Active Substance: AMLODIPINE BESYLATE\HYDROCHLOROTHIAZIDE\VALSARTAN
     Indication: HYPERTENSION
     Dosage: 1 DF (5 MG OF AMLODIPINE, 160 MG OF HYDROCHLOROTHIAZIDE AND 12.5 MG OF VALSARTAN), TID AROUND 3 YEAR
     Route: 048

REACTIONS (2)
  - Breast cancer [Unknown]
  - Inappropriate schedule of product administration [Unknown]
